FAERS Safety Report 13440573 (Version 1)
Quarter: 2017Q2

REPORT INFORMATION
  Report Type: Spontaneous
  Country: US (occurrence: US)
  Receive Date: 20170413
  Receipt Date: 20170413
  Transmission Date: 20170830
  Serious: Yes (Other)
  Sender: FDA-Public Use
  Company Number: US-ASTELLAS-2017US000850

PATIENT
  Sex: Male

DRUGS (1)
  1. PROGRAF [Suspect]
     Active Substance: TACROLIMUS\TACROLIMUS ANHYDROUS
     Indication: LIVER TRANSPLANT
     Dosage: 7 MG, DAILY (4X1MG PILLS IN MORNING AND 3X1MG PILLS IN EVENING)
     Route: 048
     Dates: start: 201604

REACTIONS (2)
  - Hypertension [Recovered/Resolved]
  - Headache [Not Recovered/Not Resolved]
